FAERS Safety Report 9347119 (Version 1)
Quarter: 2013Q2

REPORT INFORMATION
  Report Type: Spontaneous
  Country: IT (occurrence: IT)
  Receive Date: 20130613
  Receipt Date: 20130613
  Transmission Date: 20140414
  Serious: Yes (Hospitalization)
  Sender: FDA-Public Use
  Company Number: IT-GLAXOSMITHKLINE-B0899262A

PATIENT
  Age: 22 Year
  Sex: Female

DRUGS (4)
  1. FLUSPIRAL [Suspect]
     Indication: ASTHMA
     Route: 055
     Dates: start: 20130403, end: 20130404
  2. TACHIPIRINA [Suspect]
     Indication: OROPHARYNGEAL PAIN
     Dosage: 500MG TWICE PER DAY
     Route: 065
     Dates: start: 20130404, end: 20130404
  3. TILADE [Suspect]
     Indication: ASTHMA
     Route: 065
     Dates: start: 20130403, end: 20130404
  4. EUTIROX [Concomitant]
     Indication: THYROIDECTOMY
     Dosage: 100MG PER DAY

REACTIONS (3)
  - Rash pruritic [Recovering/Resolving]
  - Rash papular [Recovering/Resolving]
  - Adverse drug reaction [Recovering/Resolving]
